FAERS Safety Report 23562988 (Version 2)
Quarter: 2024Q3

REPORT INFORMATION
  Report Type: Spontaneous
  Country: US (occurrence: US)
  Receive Date: 20240226
  Receipt Date: 20240830
  Transmission Date: 20241016
  Serious: No
  Sender: SANOFI AVENTIS
  Company Number: US-SA-SAC20240220000527

PATIENT
  Age: 40 Year
  Sex: Female

DRUGS (22)
  1. DUPIXENT [Suspect]
     Active Substance: DUPILUMAB
     Indication: Asthma
     Dosage: 300 MG, QOW
     Route: 058
     Dates: start: 202311
  2. LEVOFLOXACIN [Concomitant]
     Active Substance: LEVOFLOXACIN
     Dosage: UNK
  3. COUMADIN [Concomitant]
     Active Substance: WARFARIN SODIUM
     Dosage: UNK
  4. ASPIRIN [Concomitant]
     Active Substance: ASPIRIN
     Dosage: UNK
  5. AZELASTINE HYDROCHLORIDE [Concomitant]
     Active Substance: AZELASTINE HYDROCHLORIDE
     Dosage: UNK
  6. DEXILANT [Concomitant]
     Active Substance: DEXLANSOPRAZOLE
     Dosage: UNK
  7. DOXEPIN HYDROCHLORIDE [Concomitant]
     Active Substance: DOXEPIN HYDROCHLORIDE
     Dosage: UNK
  8. FAMOTIDINE [Concomitant]
     Active Substance: FAMOTIDINE
     Dosage: UNK
  9. JANTOVEN [Concomitant]
     Active Substance: WARFARIN SODIUM
     Dosage: UNK
  10. LYRICA [Concomitant]
     Active Substance: PREGABALIN
     Dosage: UNK
  11. EMGALITY [Concomitant]
     Active Substance: GALCANEZUMAB-GNLM
     Dosage: UNK
  12. MEXILETINE [Concomitant]
     Active Substance: MEXILETINE
     Dosage: UNK
  13. NURTEC ODT [Concomitant]
     Active Substance: RIMEGEPANT SULFATE
     Dosage: UNK
  14. OZEMPIC [Concomitant]
     Active Substance: SEMAGLUTIDE
     Dosage: UNK
  15. SINGULAIR [Concomitant]
     Active Substance: MONTELUKAST SODIUM
     Dosage: UNK
  16. SPIRIVA RESPIMAT [Concomitant]
     Active Substance: TIOTROPIUM BROMIDE
     Dosage: UNK
  17. SYMBICORT [Concomitant]
     Active Substance: BUDESONIDE\FORMOTEROL FUMARATE DIHYDRATE
     Dosage: UNK
  18. TIKOSYN [Concomitant]
     Active Substance: DOFETILIDE
     Dosage: UNK
  19. XHANCE [Concomitant]
     Active Substance: FLUTICASONE PROPIONATE
     Dosage: UNK
  20. XYZAL ALLERGY 24HR [Concomitant]
     Active Substance: LEVOCETIRIZINE DIHYDROCHLORIDE
     Dosage: UNK
  21. METOPROLOL TARTRATE [Concomitant]
     Active Substance: METOPROLOL TARTRATE
     Dosage: UNK
  22. SPIRONOLACTONE [Concomitant]
     Active Substance: SPIRONOLACTONE
     Dosage: UNK

REACTIONS (4)
  - Dyspnoea [Not Recovered/Not Resolved]
  - COVID-19 [Unknown]
  - Foot operation [Unknown]
  - Sluggishness [Unknown]

NARRATIVE: CASE EVENT DATE: 20230101
